FAERS Safety Report 25064579 (Version 1)
Quarter: 2025Q1

REPORT INFORMATION
  Report Type: Report from Study
  Country: JP (occurrence: JP)
  Receive Date: 20250311
  Receipt Date: 20250311
  Transmission Date: 20250409
  Serious: Yes (Disabling)
  Sender: SHIONOGI
  Company Number: JP-shionogi-202500002590

PATIENT
  Age: 77 Year
  Sex: Female
  Weight: 35.8 kg

DRUGS (11)
  1. CEFIDEROCOL [Suspect]
     Active Substance: CEFIDEROCOL
     Indication: Endocarditis
     Route: 041
     Dates: start: 20250123, end: 20250203
  2. CEFIDEROCOL [Suspect]
     Active Substance: CEFIDEROCOL
     Indication: Bacteraemia
     Route: 041
     Dates: start: 20250204, end: 20250204
  3. CEFIDEROCOL [Suspect]
     Active Substance: CEFIDEROCOL
     Route: 041
     Dates: start: 20250205, end: 20250214
  4. MEROPENEM [Suspect]
     Active Substance: MEROPENEM
     Indication: Endocarditis
     Route: 065
     Dates: start: 20241224, end: 20250117
  5. MEROPENEM [Suspect]
     Active Substance: MEROPENEM
     Indication: Bacteraemia
  6. GENTAMICIN SULFATE [Suspect]
     Active Substance: GENTAMICIN SULFATE
     Indication: Endocarditis
     Route: 065
     Dates: start: 20241230, end: 20250122
  7. GENTAMICIN SULFATE [Suspect]
     Active Substance: GENTAMICIN SULFATE
     Indication: Bacteraemia
  8. COLISTIN [Suspect]
     Active Substance: COLISTIN
     Indication: Endocarditis
     Route: 065
     Dates: start: 20250118, end: 20250122
  9. COLISTIN [Suspect]
     Active Substance: COLISTIN
     Indication: Bacteraemia
  10. VANCOMYCIN HYDROCHLORIDE [Concomitant]
     Active Substance: VANCOMYCIN HYDROCHLORIDE
     Indication: Clostridium difficile infection
     Route: 048
     Dates: start: 20250124, end: 20250205
  11. WARFARIN [Concomitant]
     Active Substance: WARFARIN
     Indication: Product used for unknown indication
     Route: 048
     Dates: start: 20250201

REACTIONS (2)
  - Renal failure [Not Recovered/Not Resolved]
  - Clostridium difficile infection [Recovered/Resolved]

NARRATIVE: CASE EVENT DATE: 20250124
